FAERS Safety Report 8487947-4 (Version None)
Quarter: 2012Q3

REPORT INFORMATION
  Report Type: 
  Country: None (occurrence: None)
  Receive Date: 20120705
  Receipt Date: 20120625
  Transmission Date: 20120928
  Serious: Yes (Other)
  Sender: FDA-Public Use
  Company Number: PHEH2012US011511

PATIENT
  Sex: Male
  Weight: 93.878 kg

DRUGS (3)
  1. DIOVAN HCT [Suspect]
     Indication: HYPERTENSION
     Dosage: 1 DF, QD (320 MG VALS AND 12.5 MG HYDR)
     Route: 048
     Dates: start: 20100201, end: 20120613
  2. CRESTOR [Concomitant]
     Indication: BLOOD CHOLESTEROL INCREASED
     Dosage: UNK, QD
     Route: 048
     Dates: start: 20081201
  3. NASONEX [Concomitant]
     Indication: RHINITIS
     Dates: start: 20081201

REACTIONS (25)
  - DIZZINESS [None]
  - FATIGUE [None]
  - MUSCULAR WEAKNESS [None]
  - TINNITUS [None]
  - POLLAKIURIA [None]
  - ROAD TRAFFIC ACCIDENT [None]
  - BLOOD PRESSURE FLUCTUATION [None]
  - MUSCULOSKELETAL DISCOMFORT [None]
  - FLUSHING [None]
  - MEMORY IMPAIRMENT [None]
  - CONFUSIONAL STATE [None]
  - LOSS OF CONSCIOUSNESS [None]
  - BALANCE DISORDER [None]
  - HYPERHIDROSIS [None]
  - SPINAL COMPRESSION FRACTURE [None]
  - ASTHENIA [None]
  - NERVOUSNESS [None]
  - PARAESTHESIA [None]
  - NECK PAIN [None]
  - HEARING IMPAIRED [None]
  - HEADACHE [None]
  - FEELING JITTERY [None]
  - SENSATION OF HEAVINESS [None]
  - DEHYDRATION [None]
  - SINUS CONGESTION [None]
